FAERS Safety Report 16656381 (Version 1)
Quarter: 2019Q3

REPORT INFORMATION
  Report Type: Spontaneous
  Country: US (occurrence: US)
  Receive Date: 20190731
  Receipt Date: 20190731
  Transmission Date: 20191004
  Serious: Yes (Other)
  Sender: FDA-Public Use
  Company Number: None

PATIENT
  Age: 34 Year
  Sex: Female
  Weight: 90 kg

DRUGS (1)
  1. DEOXYCHOLIC ACID [Suspect]
     Active Substance: DEOXYCHOLIC ACID
     Indication: BODY FAT DISORDER
     Dates: start: 20190628, end: 20190628

REACTIONS (5)
  - Contusion [None]
  - Product substitution issue [None]
  - Dyspnoea [None]
  - Tenderness [None]
  - Swelling [None]

NARRATIVE: CASE EVENT DATE: 20190628
